FAERS Safety Report 7258041-5 (Version None)
Quarter: 2011Q1

REPORT INFORMATION
  Report Type: 
  Country: None (occurrence: None)
  Receive Date: 20110129
  Receipt Date: 20100614
  Transmission Date: 20110831
  Serious: Yes (Other)
  Sender: FDA-Public Use
  Company Number: US-ABBOTT-10P-163-0652010-00

PATIENT
  Age: 67 Year
  Sex: Female

DRUGS (5)
  1. DEPAKOTE [Concomitant]
     Indication: BIPOLAR DISORDER
     Route: 048
  2. WELLBUTRIN [Concomitant]
     Indication: BIPOLAR DISORDER
  3. HUMIRA [Suspect]
     Indication: PSORIASIS
     Dates: start: 20100610
  4. HUMIRA [Suspect]
     Indication: PSORIASIS
     Dates: start: 20070101, end: 20090801
  5. LITHIUM [Concomitant]
     Indication: BIPOLAR DISORDER

REACTIONS (3)
  - PNEUMONIA [None]
  - PSORIASIS [None]
  - PYREXIA [None]
